FAERS Safety Report 5453028-7 (Version None)
Quarter: 2007Q3

REPORT INFORMATION
  Report Type: 
  Country: None (occurrence: None)
  Receive Date: 20070914
  Receipt Date: 20070905
  Transmission Date: 20080115
  Serious: No
  Sender: FDA-Public Use
  Company Number: US-BOEHRINGER INGELHEIM PHARMACEUTICALS, INC.-2007-BP-20587BP

PATIENT
  Sex: Female

DRUGS (9)
  1. MIRAPEX [Suspect]
     Indication: PARKINSON'S DISEASE
     Route: 048
     Dates: start: 20000101
  2. LEVOTHYROXINE SODIUM [Concomitant]
     Indication: BASEDOW'S DISEASE
  3. SINGULAIR [Concomitant]
     Indication: SINUS DISORDER
  4. ZYRTEC [Concomitant]
     Indication: SINUS DISORDER
  5. SEROQUEL [Concomitant]
     Indication: SCHIZOPHRENIA
  6. TRAMADOL HCL [Concomitant]
     Indication: PAIN
  7. NASONEX [Concomitant]
     Indication: SINUS DISORDER
  8. CITALOPRAM HYDROBROMIDE [Concomitant]
     Indication: DEPRESSION
  9. GLYCOLAX [Concomitant]

REACTIONS (1)
  - TREMOR [None]
